FAERS Safety Report 6857876-8 (Version None)
Quarter: 2010Q3

REPORT INFORMATION
  Report Type: 
  Country: None (occurrence: None)
  Receive Date: 20100719
  Receipt Date: 20080129
  Transmission Date: 20110219
  Serious: No
  Sender: FDA-Public Use
  Company Number: US-PFIZER INC-2008010231

PATIENT
  Sex: Female

DRUGS (1)
  1. CHANTIX [Suspect]
     Indication: SMOKING CESSATION THERAPY

REACTIONS (6)
  - DYSGEUSIA [None]
  - EAR DISCOMFORT [None]
  - FATIGUE [None]
  - PAROSMIA [None]
  - RAPID EYE MOVEMENTS SLEEP ABNORMAL [None]
  - SOMNOLENCE [None]
